FAERS Safety Report 13585329 (Version 1)
Quarter: 2017Q2

REPORT INFORMATION
  Report Type: Spontaneous
  Country: US (occurrence: US)
  Receive Date: 20170526
  Receipt Date: 20170526
  Transmission Date: 20170830
  Serious: No
  Sender: FDA-Public Use
  Company Number: US-GLAXOSMITHKLINE-US2017073530

PATIENT
  Sex: Female

DRUGS (4)
  1. VENTOLIN HFA [Suspect]
     Active Substance: ALBUTEROL SULFATE
     Indication: INCREASED UPPER AIRWAY SECRETION
     Dosage: UNK
  2. COMBIVENT [Concomitant]
     Active Substance: ALBUTEROL SULFATE\IPRATROPIUM BROMIDE
  3. VENTOLIN HFA [Suspect]
     Active Substance: ALBUTEROL SULFATE
     Indication: ADRENAL DISORDER
     Dosage: 2 PUFF(S), PRN
     Route: 055
  4. VENTOLIN HFA [Suspect]
     Active Substance: ALBUTEROL SULFATE
     Indication: FACIAL BONES FRACTURE

REACTIONS (6)
  - Product cleaning inadequate [Unknown]
  - Overdose [Unknown]
  - Product use in unapproved indication [Unknown]
  - Nasal congestion [Unknown]
  - Drug ineffective [Unknown]
  - Device use error [Unknown]
